FAERS Safety Report 9423177 (Version 2)
Quarter: 2013Q4

REPORT INFORMATION
  Report Type: Spontaneous
  Country: JP (occurrence: None)
  Receive Date: 20130724
  Receipt Date: 20131009
  Transmission Date: 20140711
  Serious: Yes (Hospitalization, Other)
  Sender: FDA-Public Use
  Company Number: ENT 2013-0119

PATIENT
  Age: 68 Year
  Sex: Male

DRUGS (1)
  1. COMTAN [Suspect]
     Indication: PARKINSON^S DISEASE
     Route: 048

REACTIONS (4)
  - Ventricular tachycardia [None]
  - Faeces discoloured [None]
  - Gastric ulcer [None]
  - Cardiac disorder [None]
